FAERS Safety Report 7394628-7 (Version None)
Quarter: 2011Q2

REPORT INFORMATION
  Report Type: 
  Country: None (occurrence: None)
  Receive Date: 20110405
  Receipt Date: 20110331
  Transmission Date: 20111010
  Serious: Yes (Hospitalization)
  Sender: FDA-Public Use
  Company Number: US-ELI_LILLY_AND_COMPANY-US201103006943

PATIENT
  Sex: Female
  Weight: 97 kg

DRUGS (2)
  1. EXENATIDE [Suspect]
     Dosage: 1 UG, OTHER
     Route: 042
     Dates: start: 20110228
  2. EXENATIDE [Suspect]
     Dosage: 20
     Route: 042
     Dates: start: 20110228

REACTIONS (1)
  - MYOCARDIAL INFARCTION [None]
